FAERS Safety Report 11542053 (Version 1)
Quarter: 2015Q3

REPORT INFORMATION
  Report Type: Spontaneous
  Country: US (occurrence: US)
  Receive Date: 20150923
  Receipt Date: 20150923
  Transmission Date: 20151125
  Serious: Yes (Other)
  Sender: FDA-Public Use
  Company Number: PHEH2015US018398

PATIENT
  Age: 47 Year
  Sex: Male

DRUGS (2)
  1. ZOMETA [Suspect]
     Active Substance: ZOLEDRONIC ACID
     Indication: PLASMA CELL MYELOMA
     Dosage: 11 DOSES OF 4 MG, Q3MO
     Route: 042
     Dates: start: 20100609
  2. ZOMETA [Suspect]
     Active Substance: ZOLEDRONIC ACID
     Dosage: 2 MG, Q3MO
     Route: 042
     Dates: start: 201402, end: 20150916

REACTIONS (3)
  - Incorrect dose administered [Unknown]
  - Foot fracture [Not Recovered/Not Resolved]
  - Atypical fracture [Not Recovered/Not Resolved]

NARRATIVE: CASE EVENT DATE: 20150715
